FAERS Safety Report 5934950-1 (Version None)
Quarter: 2008Q4

REPORT INFORMATION
  Report Type: 
  Country: None (occurrence: None)
  Receive Date: 20081028
  Receipt Date: 20081022
  Transmission Date: 20090506
  Serious: Yes (Other)
  Sender: FDA-Public Use
  Company Number: 1000001430

PATIENT
  Age: 42 Year
  Sex: Male
  Weight: 102.0593 kg

DRUGS (7)
  1. LEXAPRO [Suspect]
     Indication: DEPRESSION
     Dosage: 10 MG (10 MG, 1 IN 1 D), ORAL; 20 MG (20 MG, 1 IN 1 D), ORAL
     Route: 048
     Dates: start: 20030101
  2. LEXAPRO [Suspect]
     Indication: DEPRESSION
     Dosage: (30 MG), ORAL
     Route: 048
  3. LEXAPRO [Suspect]
     Indication: DEPRESSION
     Dosage: 10 MG (10 MG, 1 IN 1 D), ORAL
     Route: 048
     Dates: end: 20080801
  4. LEXAPRO [Suspect]
     Indication: DEPRESSION
     Dosage: 5 MG (5 MG, 1 IN 1 D), ORAL
     Route: 048
     Dates: start: 20080901
  5. WELLBUTRIN [Concomitant]
  6. ZOCOR [Concomitant]
  7. XANAX [Concomitant]

REACTIONS (5)
  - BLINDNESS UNILATERAL [None]
  - DRY EYE [None]
  - MACULOPATHY [None]
  - OVERDOSE [None]
  - WEIGHT INCREASED [None]
